FAERS Safety Report 4305968-X (Version None)
Quarter: 2004Q1

REPORT INFORMATION
  Report Type: 
  Country: None (occurrence: None)
  Receive Date: 20040225
  Receipt Date: 20040213
  Transmission Date: 20041129
  Serious: Yes (Death)
  Sender: FDA-Public Use
  Company Number: USA-2003-0007606

PATIENT
  Age: 38 Year
  Sex: Male
  Weight: 146.5 kg

DRUGS (8)
  1. OXYCODONE HCL [Suspect]
  2. ENDOCET (OXYCODONE HYDROCHLORIDE, PARACETAMOL) [Suspect]
     Indication: POST PROCEDURAL PAIN
  3. LIDOCAINE [Suspect]
  4. CAFFEINE (CAFFEINE) [Suspect]
  5. NICOTINE [Suspect]
  6. MEPIVACAINE HCL [Suspect]
  7. CLONAZEPAM [Suspect]
  8. METHADONE HCL [Suspect]

REACTIONS (6)
  - ACUTE PULMONARY OEDEMA [None]
  - APNOEA [None]
  - ARRHYTHMIA [None]
  - FACE OEDEMA [None]
  - LUNG DISORDER [None]
  - OBESITY [None]
